FAERS Safety Report 6916820-5 (Version None)
Quarter: 2010Q3

REPORT INFORMATION
  Report Type: 
  Country: None (occurrence: None)
  Receive Date: 20100810
  Receipt Date: 20100727
  Transmission Date: 20110219
  Serious: Yes (Hospitalization)
  Sender: FDA-Public Use
  Company Number: FR-JNJFOC-20100801867

PATIENT
  Sex: Male

DRUGS (6)
  1. IXPRIM [Suspect]
     Indication: TOOTHACHE
     Route: 048
  2. DOLIPRANE [Suspect]
     Indication: TOOTHACHE
     Route: 048
  3. BI-PROFENID [Suspect]
     Indication: TOOTHACHE
     Route: 048
  4. AMOXICILLIN AND CLAVULANATE POTASSIUM [Suspect]
     Indication: TOOTHACHE
     Route: 048
  5. NEUROFEN [Suspect]
     Indication: TOOTHACHE
     Route: 048
  6. ALL OTHER THERAPEUTIC PRODUCTS [Suspect]
     Indication: PRODUCT USED FOR UNKNOWN INDICATION

REACTIONS (2)
  - HYPERTHERMIA [None]
  - TOXIC SKIN ERUPTION [None]
